FAERS Safety Report 8895412 (Version 1)
Quarter: 2012Q4

REPORT INFORMATION
  Report Type: 
  Country: US (occurrence: US)
  Receive Date: 20121107
  Receipt Date: 20121107
  Transmission Date: 20130627
  Serious: Yes (Other)
  Sender: FDA-Public Use
  Company Number: PHHY2012US101211

PATIENT
  Age: 65 Year
  Sex: Female

DRUGS (2)
  1. ENOXAPARIN [Suspect]
  2. WARFARIN [Suspect]

REACTIONS (21)
  - Abdominal wall haematoma [Unknown]
  - Hypotension [Unknown]
  - Abdominal pain [Unknown]
  - Anaemia [Unknown]
  - Intestinal perforation [Unknown]
  - Ileal perforation [Unknown]
  - Large intestine perforation [Unknown]
  - Abdominal distension [Unknown]
  - Abdominal rigidity [Unknown]
  - Intestinal dilatation [Unknown]
  - Abdominal rebound tenderness [Unknown]
  - Pyrexia [Unknown]
  - Blood pressure decreased [Unknown]
  - Heart rate increased [Unknown]
  - Haemoglobin decreased [Unknown]
  - Platelet count decreased [Unknown]
  - Pneumonia [Unknown]
  - Cardiac failure congestive [Unknown]
  - Atrial fibrillation [Unknown]
  - Respiratory failure [Unknown]
  - Deep vein thrombosis [Unknown]
